FAERS Safety Report 8933769 (Version 2)
Quarter: 2013Q1

REPORT INFORMATION
  Report Type: Other
  Country: GB (occurrence: GB)
  Receive Date: 20121129
  Receipt Date: 20130129
  Transmission Date: 20140127
  Serious: Yes (Congenital Anomaly)
  Sender: FDA-Public Use
  Company Number: GB-WATSON-2012-20397

PATIENT
  Age: 33 Year
  Sex: Female
  Weight: 52 kg

DRUGS (1)
  1. CABERGOLINE (UNKNOWN) [Suspect]
     Indication: HYPERPROLACTINAEMIA
     Dosage: 500 MCG, DAILY
     Route: 048
     Dates: start: 20080424

REACTIONS (1)
  - Abortion spontaneous [Unknown]
